FAERS Safety Report 21605264 (Version 4)
Quarter: 2023Q2

REPORT INFORMATION
  Report Type: Report from Study
  Country: CN (occurrence: CN)
  Receive Date: 20221116
  Receipt Date: 20230411
  Transmission Date: 20230721
  Serious: Yes (Hospitalization, Other)
  Sender: FDA-Public Use
  Company Number: CN-JNJFOC-20221051473

PATIENT
  Age: 69 Year
  Sex: Male
  Weight: 63 kg

DRUGS (7)
  1. AMIVANTAMAB [Suspect]
     Active Substance: AMIVANTAMAB
     Indication: Non-small cell lung cancer metastatic
     Route: 042
     Dates: start: 20211228, end: 20220920
  2. AMLODIPINE BESYLATE [Concomitant]
     Active Substance: AMLODIPINE BESYLATE
     Indication: Hypertension
     Route: 048
     Dates: start: 20170101
  3. FOLIC ACID [Concomitant]
     Active Substance: FOLIC ACID
     Indication: Anaemia prophylaxis
     Route: 048
     Dates: start: 20211215
  4. LIDOCAINE HYDROCHLORIDE [Concomitant]
     Active Substance: LIDOCAINE HYDROCHLORIDE
     Indication: Stomatitis
     Route: 048
     Dates: start: 20220208
  5. COMPOUND CHLORHEXIDINE GARGLE [Concomitant]
     Indication: Stomatitis
     Route: 048
     Dates: start: 20220208
  6. ILAPRAZOLE [Concomitant]
     Active Substance: ILAPRAZOLE
     Indication: Prophylaxis
     Route: 048
     Dates: start: 20211228
  7. UREA AND VITAMIN E [Concomitant]
     Indication: Drug eruption
     Route: 061
     Dates: start: 20220812

REACTIONS (2)
  - Pulmonary embolism [Recovering/Resolving]
  - Pneumonitis [Not Recovered/Not Resolved]

NARRATIVE: CASE EVENT DATE: 20221024
